FAERS Safety Report 11220869 (Version 1)
Quarter: 2015Q2

REPORT INFORMATION
  Report Type: Spontaneous
  Country: IE (occurrence: IE)
  Receive Date: 20150626
  Receipt Date: 20150626
  Transmission Date: 20150821
  Serious: Yes (Hospitalization, Other)
  Sender: FDA-Public Use
  Company Number: IE-ASTRAZENECA-2015SE62505

PATIENT
  Age: 55 Year
  Sex: Female

DRUGS (3)
  1. GLICLAZIDE [Concomitant]
     Active Substance: GLICLAZIDE
  2. METFORMIN [Concomitant]
     Active Substance: METFORMIN HYDROCHLORIDE
  3. FORXIGA [Suspect]
     Active Substance: DAPAGLIFLOZIN
     Route: 048

REACTIONS (2)
  - Infection [Unknown]
  - Diabetic ketoacidosis [Unknown]
